FAERS Safety Report 4945474-2 (Version None)
Quarter: 2006Q1

REPORT INFORMATION
  Report Type: 
  Country: None (occurrence: None)
  Receive Date: 20060316
  Receipt Date: 20060309
  Transmission Date: 20060701
  Serious: Yes (Other)
  Sender: FDA-Public Use
  Company Number: FR-GLAXOSMITHKLINE-B0415347A

PATIENT
  Age: 78 Year
  Sex: Female

DRUGS (2)
  1. ZOPHREN [Suspect]
     Dosage: 4MG PER DAY
     Route: 048
  2. LANREOTIDE [Concomitant]
     Route: 065

REACTIONS (3)
  - CHEST PAIN [None]
  - GASTROOESOPHAGEAL REFLUX DISEASE [None]
  - VOMITING [None]
